FAERS Safety Report 8827982 (Version 3)
Quarter: 2012Q4

REPORT INFORMATION
  Report Type: 
  Country: DE (occurrence: DE)
  Receive Date: 20121005
  Receipt Date: 20121224
  Transmission Date: 20130627
  Serious: Yes (Other)
  Sender: FDA-Public Use
  Company Number: DE-JNJFOC-20120911077

PATIENT
  Sex: Male
  Weight: 81 kg

DRUGS (45)
  1. ZYTIGA [Suspect]
     Indication: PROSTATE CANCER
     Route: 048
     Dates: start: 20120102
  2. ZYTIGA [Suspect]
     Indication: PROSTATE CANCER
     Route: 048
     Dates: end: 20120831
  3. TARGIN [Concomitant]
     Indication: METASTASES TO BONE
     Dosage: 1-0-1-1
  4. TARGIN [Concomitant]
     Indication: PAIN MANAGEMENT
     Dosage: 1-0-1-1
  5. PREDNISONE [Concomitant]
     Indication: PROSTATE CANCER
     Dosage: 1-0-1
     Route: 065
  6. FIRMAGON [Concomitant]
     Indication: PRODUCT USED FOR UNKNOWN INDICATION
     Route: 058
     Dates: start: 20121023
  7. FIRMAGON [Concomitant]
     Indication: PRODUCT USED FOR UNKNOWN INDICATION
     Route: 058
     Dates: start: 20121110
  8. FIRMAGON [Concomitant]
     Indication: PRODUCT USED FOR UNKNOWN INDICATION
     Route: 058
  9. FIRMAGON [Concomitant]
     Indication: PRODUCT USED FOR UNKNOWN INDICATION
     Route: 058
     Dates: start: 20110120
  10. ZOMETA [Concomitant]
     Indication: PRODUCT USED FOR UNKNOWN INDICATION
     Route: 065
     Dates: start: 20120928
  11. ZOMETA [Concomitant]
     Indication: PRODUCT USED FOR UNKNOWN INDICATION
     Route: 065
     Dates: start: 20120127
  12. ZOMETA [Concomitant]
     Indication: PRODUCT USED FOR UNKNOWN INDICATION
     Route: 065
  13. ZOMETA [Concomitant]
     Indication: PRODUCT USED FOR UNKNOWN INDICATION
     Route: 065
     Dates: start: 20120420
  14. CABAZITAXEL [Concomitant]
     Indication: PRODUCT USED FOR UNKNOWN INDICATION
     Route: 065
  15. OXYCODONE [Concomitant]
     Indication: METASTASES TO BONE
     Dosage: 0.5-0-0.5-0.5 daily
     Route: 065
     Dates: start: 20120611
  16. OXYCODONE [Concomitant]
     Indication: METASTASES TO BONE
     Route: 065
  17. OXYCODONE [Concomitant]
     Indication: METASTASES TO BONE
     Dosage: 0.5-0-1 mg daily
     Route: 065
     Dates: start: 20120514
  18. OXYCODONE [Concomitant]
     Indication: PAIN MANAGEMENT
     Dosage: 0.5-0-0.5-0.5 daily
     Route: 065
     Dates: start: 20120611
  19. OXYCODONE [Concomitant]
     Indication: PAIN MANAGEMENT
     Route: 065
  20. OXYCODONE [Concomitant]
     Indication: PAIN MANAGEMENT
     Dosage: 0.5-0-1 mg daily
     Route: 065
     Dates: start: 20120514
  21. ARCOXIA [Concomitant]
     Indication: METASTASES TO BONE
     Route: 065
     Dates: start: 20121024
  22. ARCOXIA [Concomitant]
     Indication: METASTASES TO BONE
     Route: 065
     Dates: start: 20120611
  23. ARCOXIA [Concomitant]
     Indication: METASTASES TO BONE
     Route: 065
     Dates: start: 20120514
  24. ARCOXIA [Concomitant]
     Indication: METASTASES TO BONE
     Route: 065
  25. IBUPROFEN [Concomitant]
     Indication: PAIN MANAGEMENT
     Route: 065
     Dates: start: 2012
  26. VOLTAREN [Concomitant]
     Indication: METASTASES TO BONE
     Route: 065
     Dates: start: 2012
  27. VOLTAREN [Concomitant]
     Indication: METASTASES TO BONE
     Route: 065
     Dates: start: 20120514
  28. VOLTAREN [Concomitant]
     Indication: METASTASES TO BONE
     Route: 065
     Dates: start: 20120611
  29. VOLTAREN [Concomitant]
     Indication: METASTASES TO BONE
     Route: 065
     Dates: start: 20121024
  30. VOLTAREN [Concomitant]
     Indication: PAIN MANAGEMENT
     Route: 065
     Dates: start: 20121024
  31. VOLTAREN [Concomitant]
     Indication: PAIN MANAGEMENT
     Route: 065
     Dates: start: 2012
  32. VOLTAREN [Concomitant]
     Indication: PAIN MANAGEMENT
     Route: 065
     Dates: start: 20120514
  33. VOLTAREN [Concomitant]
     Indication: PAIN MANAGEMENT
     Route: 065
     Dates: start: 20120611
  34. OMEPRAZEN [Concomitant]
     Indication: PRODUCT USED FOR UNKNOWN INDICATION
     Route: 065
     Dates: start: 2012
  35. DOCETAXEL [Concomitant]
     Indication: PRODUCT USED FOR UNKNOWN INDICATION
     Route: 065
     Dates: start: 20120314
  36. DOCETAXEL [Concomitant]
     Indication: PRODUCT USED FOR UNKNOWN INDICATION
     Route: 065
     Dates: start: 20110907
  37. VENLASAN [Concomitant]
     Indication: MEDICAL DIET
     Route: 065
  38. HELIXOR [Concomitant]
     Indication: PRODUCT USED FOR UNKNOWN INDICATION
     Route: 065
     Dates: start: 20110423
  39. HELIXOR [Concomitant]
     Indication: PRODUCT USED FOR UNKNOWN INDICATION
     Route: 065
     Dates: start: 20121109
  40. OMEPRAZOL AGEN [Concomitant]
     Indication: PROSTATE CANCER
     Dosage: 1-0-0
     Route: 065
  41. VITAMIN B6 [Concomitant]
     Indication: PRODUCT USED FOR UNKNOWN INDICATION
     Dosage: 0-1-0
     Route: 065
     Dates: start: 20120712
  42. VITAMIN B12 [Concomitant]
     Indication: PRODUCT USED FOR UNKNOWN INDICATION
     Dosage: 0-1-0
     Route: 065
  43. FOLIC ACID [Concomitant]
     Indication: PRODUCT USED FOR UNKNOWN INDICATION
     Route: 065
     Dates: start: 20120712
  44. UNKNOWN MEDICATION [Concomitant]
     Indication: PRODUCT USED FOR UNKNOWN INDICATION
     Route: 065
     Dates: start: 201106
  45. UNKNOWN MEDICATION [Concomitant]
     Indication: UNEVALUABLE EVENT
     Dosage: 1-0-1
     Route: 065
     Dates: start: 201106

REACTIONS (8)
  - Pollakiuria [Unknown]
  - Adrenal adenoma [Not Recovered/Not Resolved]
  - Hypertension [Not Recovered/Not Resolved]
  - Fluid retention [Unknown]
  - Polyneuropathy [Unknown]
  - Metastases to liver [Unknown]
  - Pancreatic disorder [Unknown]
  - Haemorrhoids [Unknown]
